FAERS Safety Report 8145281-6 (Version None)
Quarter: 2012Q1

REPORT INFORMATION
  Report Type: 
  Country: None (occurrence: None)
  Receive Date: 20120217
  Receipt Date: 20120209
  Transmission Date: 20120608
  Serious: Yes (Other)
  Sender: FDA-Public Use
  Company Number: PHHY2012JP003091

PATIENT
  Age: 54 Year
  Sex: Male

DRUGS (6)
  1. PENTAZOCINE LACTATE [Suspect]
     Indication: SEDATION
  2. DIAZEPAM [Suspect]
     Indication: ANALGESIC THERAPY
  3. NICARDIPINE HCL [Suspect]
     Indication: HYPERTENSION
     Route: 042
     Dates: start: 20070408
  4. DIAZEPAM [Suspect]
     Indication: SEDATION
     Dosage: 10 MG, UNK
     Route: 042
     Dates: start: 20070408
  5. XYLOCAINE [Suspect]
     Dates: start: 20070408, end: 20070408
  6. PENTAZOCINE LACTATE [Suspect]
     Indication: ANALGESIC THERAPY
     Dosage: 15 MG, UNK
     Route: 042
     Dates: start: 20070408

REACTIONS (5)
  - OXYGEN SATURATION DECREASED [None]
  - TACHYCARDIA [None]
  - LARYNGEAL OEDEMA [None]
  - FLUSHING [None]
  - ANAPHYLACTIC SHOCK [None]
